FAERS Safety Report 8767517 (Version 3)
Quarter: 2012Q4

REPORT INFORMATION
  Report Type: Report from Study
  Country: GB (occurrence: GB)
  Receive Date: 20120904
  Receipt Date: 20121001
  Transmission Date: 20130627
  Serious: Yes (Hospitalization)
  Sender: FDA-Public Use
  Company Number: GB-CELGENEUS-167-21880-12082751

PATIENT
  Age: 46 Year
  Sex: Male
  Weight: 48.2 kg

DRUGS (12)
  1. REVLIMID [Suspect]
     Indication: CLL
     Dosage: 10 Milligram
     Route: 048
     Dates: start: 20120723, end: 20120819
  2. DEXAMETHASONE [Suspect]
     Indication: CLL
     Dosage: 40 Milligram
     Route: 048
     Dates: start: 20120809, end: 20120819
  3. ALEMTUZUMAB [Interacting]
     Indication: CLL
     Route: 065
  4. ALLOPURINOL [Concomitant]
     Indication: PROPHYLAXIS
     Dosage: 300 Milligram
     Route: 048
     Dates: start: 20120709
  5. CO-TRIMOXAZOLE [Concomitant]
     Indication: PNEUMOCYSTIS CARINII PROPHYLAXIS
     Dosage: 960 Milligram
     Route: 048
     Dates: start: 20120709
  6. ACICLOVIR [Concomitant]
     Indication: ANTIVIRAL PROPHYLAXIS
     Dosage: 800 Milligram
     Route: 048
     Dates: start: 20120709
  7. ITRACONAZOLE [Concomitant]
     Indication: ANTIFUNGAL PROPHYLAXIS
     Dosage: 400 Milligram
     Route: 048
     Dates: start: 20120709
  8. LANSOPRAZOLE [Concomitant]
     Indication: PROPHYLAXIS
     Dosage: 30 Milligram
     Route: 048
     Dates: start: 20120709
  9. ALENDRONIC ACID [Concomitant]
     Indication: PROPHYLAXIS
     Dosage: 10 Milligram
     Route: 048
     Dates: start: 20120709
  10. ASPIRINE [Concomitant]
     Indication: DRUG USE FOR UNKNOWN INDICATION
     Dosage: 75 Milligram
     Route: 048
     Dates: start: 20120709
  11. G-CSF [Concomitant]
     Indication: DRUG USE FOR UNKNOWN INDICATION
     Dosage: 112.7143 Microgram
     Route: 058
     Dates: start: 20120813
  12. IMMUNOGLOBULIN [Concomitant]
     Indication: DRUG USE FOR UNKNOWN INDICATION
     Route: 065

REACTIONS (2)
  - Infective exacerbation of bronchiectasis [Recovered/Resolved with Sequelae]
  - Urinary tract infection [Recovered/Resolved]
